FAERS Safety Report 21163425 (Version 1)
Quarter: 2022Q3

REPORT INFORMATION
  Report Type: Spontaneous
  Country: TW (occurrence: TW)
  Receive Date: 20220802
  Receipt Date: 20220802
  Transmission Date: 20221026
  Serious: Yes (Other)
  Sender: FDA-Public Use
  Company Number: TW-AFAXYS PHARMA, LLC-2022AFX00001

PATIENT
  Age: 42 Year
  Sex: Female

DRUGS (3)
  1. LIDOCAINE [Suspect]
     Active Substance: LIDOCAINE
     Dosage: 5-10 ML
     Route: 065
  2. LIDOCAINE HYDROCHLORIDE AND EPINEPHRINE BITARTRATE [Suspect]
     Active Substance: EPINEPHRINE BITARTRATE\LIDOCAINE HYDROCHLORIDE
     Indication: Nasal decongestion therapy
     Dosage: UNK
     Route: 045
  3. DEXAMETHASONE [Concomitant]
     Active Substance: DEXAMETHASONE
     Dosage: 0.6 ML, ONCE
     Route: 065

REACTIONS (2)
  - Local anaesthetic systemic toxicity [Recovered/Resolved]
  - Quadriparesis [Recovered/Resolved]
